FAERS Safety Report 7902701-7 (Version None)
Quarter: 2011Q4

REPORT INFORMATION
  Report Type: 
  Country: None (occurrence: None)
  Receive Date: 20111108
  Receipt Date: 20111025
  Transmission Date: 20120403
  Serious: Yes (Other)
  Sender: FDA-Public Use
  Company Number: US-ASTRAZENECA-2011SE66909

PATIENT
  Age: 63 Year
  Sex: Female

DRUGS (10)
  1. LIDOCAINE [Suspect]
     Indication: SKIN WRINKLING
     Dates: start: 20110301
  2. LIDOCAINE [Suspect]
     Dates: start: 20110501
  3. LIDOCAINE [Suspect]
     Dates: start: 20110906
  4. LIDOCAINE [Suspect]
     Dates: start: 20111011
  5. SCULPTRA [Suspect]
     Indication: SKIN WRINKLING
     Dates: start: 20110301
  6. SCULPTRA [Suspect]
     Dates: start: 20110501
  7. SCULPTRA [Suspect]
     Dates: start: 20110906
  8. PROCAINE HCL [Concomitant]
  9. PARAFFIN SOFT [Concomitant]
  10. SCULPTRA [Suspect]
     Dates: start: 20110701

REACTIONS (1)
  - INJECTION SITE REACTION [None]
